FAERS Safety Report 6785950-3 (Version None)
Quarter: 2010Q2

REPORT INFORMATION
  Report Type: 
  Country: None (occurrence: None)
  Receive Date: 20100622
  Receipt Date: 20100622
  Transmission Date: 20101027
  Serious: No
  Sender: FDA-Public Use
  Company Number: None

PATIENT

DRUGS (1)
  1. TYLENOL-500 [Suspect]

REACTIONS (6)
  - HEADACHE [None]
  - HYPERSOMNIA [None]
  - PRODUCT CONTAMINATION [None]
  - PRODUCT MEASURED POTENCY ISSUE [None]
  - PRODUCT QUALITY ISSUE [None]
  - SOMNOLENCE [None]
